FAERS Safety Report 12496329 (Version 1)
Quarter: 2016Q2

REPORT INFORMATION
  Report Type: Spontaneous
  Country: US (occurrence: US)
  Receive Date: 20160624
  Receipt Date: 20160624
  Transmission Date: 20160815
  Serious: No
  Sender: FDA-Public Use
  Company Number: US-JNJFOC-20160426240

PATIENT
  Age: 88 Year
  Sex: Female
  Weight: 66.23 kg

DRUGS (2)
  1. IMODIUM A-D [Suspect]
     Active Substance: LOPERAMIDE HYDROCHLORIDE
     Route: 048
  2. IMODIUM A-D [Suspect]
     Active Substance: LOPERAMIDE HYDROCHLORIDE
     Indication: DIARRHOEA
     Dosage: 2 TSP PLUS A SIP
     Route: 048
     Dates: start: 20160427, end: 20160427

REACTIONS (2)
  - Expired product administered [Unknown]
  - Product lot number issue [Unknown]
